FAERS Safety Report 23616228 (Version 1)
Quarter: 2024Q1

REPORT INFORMATION
  Report Type: Spontaneous
  Country: AR (occurrence: AR)
  Receive Date: 20240311
  Receipt Date: 20240311
  Transmission Date: 20240410
  Serious: Yes (Hospitalization, Other)
  Sender: FDA-Public Use
  Company Number: AR-GLAXOSMITHKLINE-AR2023AMR077628

PATIENT

DRUGS (2)
  1. NUCALA [Suspect]
     Active Substance: MEPOLIZUMAB
     Indication: Asthma
     Dosage: 100 MG
     Dates: start: 20220726, end: 20231115
  2. NUCALA [Suspect]
     Active Substance: MEPOLIZUMAB
     Dosage: 100 MG, Q4W
     Dates: start: 20240101

REACTIONS (13)
  - Pneumonia influenzal [Recovered/Resolved]
  - Asthma [Recovered/Resolved]
  - Anxiety [Not Recovered/Not Resolved]
  - Malaise [Not Recovered/Not Resolved]
  - Panic reaction [Unknown]
  - Pharyngitis [Not Recovered/Not Resolved]
  - Oropharyngeal pain [Unknown]
  - Aphonia [Unknown]
  - Wheezing [Not Recovered/Not Resolved]
  - Agitation [Unknown]
  - Impaired quality of life [Unknown]
  - Headache [Unknown]
  - Dyspnoea [Unknown]

NARRATIVE: CASE EVENT DATE: 20230512
